FAERS Safety Report 6546305-X (Version None)
Quarter: 2010Q1

REPORT INFORMATION
  Report Type: 
  Country: None (occurrence: None)
  Receive Date: 20100122
  Receipt Date: 20100114
  Transmission Date: 20100710
  Serious: Yes (Hospitalization)
  Sender: FDA-Public Use
  Company Number: SE-ROCHE-677502

PATIENT
  Age: 77 Year
  Sex: Male

DRUGS (10)
  1. TAMIFLU [Suspect]
     Indication: DRUG USE FOR UNKNOWN INDICATION
     Dosage: DRUG REPORTED AS TAMIFLU CAPS HARD
     Route: 065
     Dates: start: 20091217, end: 20091218
  2. PANDEMRIX [Suspect]
     Route: 065
     Dates: start: 20091215, end: 20091215
  3. TRIOBE [Concomitant]
  4. NITROMEX [Concomitant]
     Dosage: DRUG NAME REPORTED AS NITROMEX SUBLINGUAL TABLET 0.5 MG.
  5. LEVAXIN TABLETS [Concomitant]
     Dosage: DRUG NAME REPORTED AS LEVAXIN TABLETS 100 MIKROG.
  6. ALVEDON [Concomitant]
     Dosage: DRUG NAME REPORTED AS ALEVEDON TABLETS 500 MG.
  7. FURIX [Concomitant]
     Dosage: DRUG NAME REPORTED AS FURIX TABLETS 40 MG.
  8. SELOKEN RETARD PLUS [Concomitant]
     Dosage: SELOKEN ZOC PROLONGED -RELEASE TABL 50 MG.
  9. TROMBYL [Concomitant]
     Dosage: TROMBYL TABLET 75 MG
  10. MICARDIS [Concomitant]
     Dosage: DRUG NAME REORTED AS MICARDIS TABL 40 MG.

REACTIONS (4)
  - CHILLS [None]
  - CONFUSIONAL STATE [None]
  - INFLUENZA LIKE ILLNESS [None]
  - SOMNOLENCE [None]
